FAERS Safety Report 7105206-9 (Version None)
Quarter: 2010Q4

REPORT INFORMATION
  Report Type: 
  Country: None (occurrence: None)
  Receive Date: 20101108
  Receipt Date: 20101027
  Transmission Date: 20110411
  Serious: Yes (Disabling)
  Sender: FDA-Public Use
  Company Number: 2010-3597

PATIENT
  Age: 64 Year
  Sex: Female

DRUGS (5)
  1. DYSPORT [Suspect]
     Indication: SKIN WRINKLING
     Dosage: 95 UNITS (95 UNITS,SINGLE CYCLE),PARENTERAL
     Route: 051
     Dates: start: 20100609, end: 20100609
  2. PERLANE(HYALURONIC ACID) [Suspect]
     Indication: SKIN COSMETIC PROCEDURE
     Dosage: 1 ML (1 ML,ONCE)
     Dates: start: 20100609, end: 20100609
  3. RESTYLANE (HYALURONIC ACID) [Suspect]
     Indication: SKIN COSMETIC PROCEDURE
     Dosage: 1 ML (1 ML,ONCE)
     Dates: start: 20100609, end: 20100609
  4. EMLA (EMLA /00675501/) [Concomitant]
  5. ROGAINE [Concomitant]

REACTIONS (2)
  - VASCULITIS [None]
  - WRONG TECHNIQUE IN DRUG USAGE PROCESS [None]
